FAERS Safety Report 17133066 (Version 1)
Quarter: 2019Q4

REPORT INFORMATION
  Report Type: Spontaneous
  Country: US (occurrence: US)
  Receive Date: 20191209
  Receipt Date: 20191209
  Transmission Date: 20200122
  Serious: Yes (Death)
  Sender: FDA-Public Use
  Company Number: None

PATIENT
  Age: 92 Year
  Sex: Female
  Weight: 42.75 kg

DRUGS (14)
  1. METOPROLOL SUCCINATE. [Concomitant]
     Active Substance: METOPROLOL SUCCINATE
  2. PRAVASTATIN. [Concomitant]
     Active Substance: PRAVASTATIN
  3. EXEMESTANE. [Concomitant]
     Active Substance: EXEMESTANE
  4. VITAMIN D [Concomitant]
     Active Substance: VITAMIN D NOS
  5. VERZENIO [Suspect]
     Active Substance: ABEMACICLIB
     Indication: BREAST CANCER FEMALE
     Dosage: ?          OTHER FREQUENCY:QD 6 DAYS PER WEEK;?
     Route: 048
     Dates: start: 20190817, end: 20191209
  6. AMLODIPINE [Concomitant]
     Active Substance: AMLODIPINE BESYLATE
  7. ELIQUIS [Concomitant]
     Active Substance: APIXABAN
  8. POTASSIUM CHLORIDE. [Concomitant]
     Active Substance: POTASSIUM CHLORIDE
  9. FLAXSEED [Concomitant]
     Active Substance: FLAX SEED
  10. CILOSTAZOL. [Concomitant]
     Active Substance: CILOSTAZOL
  11. PROCHLORPERAZINE. [Concomitant]
     Active Substance: PROCHLORPERAZINE
  12. HYDROCHLOROTHIAZIDE AND LISINOPRIL [Concomitant]
     Active Substance: HYDROCHLOROTHIAZIDE\LISINOPRIL
  13. LASIX [Concomitant]
     Active Substance: FUROSEMIDE
  14. PAMIDRONATE [Concomitant]
     Active Substance: PAMIDRONATE DISODIUM

REACTIONS (1)
  - Death [None]
